FAERS Safety Report 19905843 (Version 3)
Quarter: 2021Q4

REPORT INFORMATION
  Report Type: Report from Study
  Country: US (occurrence: US)
  Receive Date: 20211001
  Receipt Date: 20211210
  Transmission Date: 20220303
  Serious: No
  Sender: FDA-Public Use
  Company Number: US-SANOFI-00752160

PATIENT
  Age: 77 Year
  Sex: Female

DRUGS (8)
  1. DUPILUMAB [Suspect]
     Active Substance: DUPILUMAB
     Indication: Dermatitis atopic
     Dosage: 600 MG, 1X
     Route: 058
     Dates: start: 20210804, end: 20210804
  2. DUPILUMAB [Suspect]
     Active Substance: DUPILUMAB
     Dosage: 300 MG, QOW
     Route: 058
     Dates: start: 2021
  3. ERYTHROMYCIN [Concomitant]
     Active Substance: ERYTHROMYCIN
     Indication: Eye infection
  4. ROSUVASTATIN [Concomitant]
     Active Substance: ROSUVASTATIN
     Indication: Hypercholesterolaemia
     Dosage: 5 MG, QD
     Route: 048
  5. XARELTO [Concomitant]
     Active Substance: RIVAROXABAN
     Indication: Deep vein thrombosis
     Route: 048
  6. CALCIUM [Concomitant]
     Active Substance: CALCIUM
  7. VITAMIN D2 [Concomitant]
     Active Substance: ERGOCALCIFEROL
  8. HYDROCHLOROTHIAZIDE\TRIAMTERENE [Concomitant]
     Active Substance: HYDROCHLOROTHIAZIDE\TRIAMTERENE
     Indication: Oedema
     Dosage: DOSE: 57.5-25 MG, FREQUENCY: QD
     Route: 048

REACTIONS (7)
  - Back disorder [Unknown]
  - Eye infection [Not Recovered/Not Resolved]
  - Eye discharge [Not Recovered/Not Resolved]
  - Eyelid infection [Recovering/Resolving]
  - Ocular hyperaemia [Not Recovered/Not Resolved]
  - Arthralgia [Not Recovered/Not Resolved]
  - Eye pruritus [Not Recovered/Not Resolved]

NARRATIVE: CASE EVENT DATE: 20210101
